FAERS Safety Report 5632915-0 (Version None)
Quarter: 2008Q1

REPORT INFORMATION
  Report Type: 
  Country: None (occurrence: None)
  Receive Date: 20080212
  Receipt Date: 20080204
  Transmission Date: 20080703
  Serious: Yes (Hospitalization, Other)
  Sender: FDA-Public Use
  Company Number: 100#08#2008-00582

PATIENT
  Age: 32 Year
  Sex: Female

DRUGS (5)
  1. LITHIUM (EXTENDED-RELEASE FORMULATION) (LITHIUM) [Suspect]
     Indication: INTENTIONAL OVERDOSE
     Dosage: 16 G; ONCE
  2. AMITRIPTYLINE HCL [Suspect]
     Indication: DRUG USE FOR UNKNOWN INDICATION
     Dosage: 25 MG TWO TIMES DAILY, ORAL
     Route: 048
  3. CLORAZEPATE (CLORAZEPATE) [Concomitant]
  4. CLOMIPRAMINE HCL [Concomitant]
  5. LORAZEPAM [Concomitant]

REACTIONS (7)
  - ANTIPSYCHOTIC DRUG LEVEL INCREASED [None]
  - GASTROINTESTINAL MOTILITY DISORDER [None]
  - HAEMODIALYSIS [None]
  - INTENTIONAL OVERDOSE [None]
  - RENAL IMPAIRMENT [None]
  - THERAPEUTIC AGENT TOXICITY [None]
  - WHITE BLOOD CELL COUNT INCREASED [None]
